FAERS Safety Report 12448604 (Version 2)
Quarter: 2016Q3

REPORT INFORMATION
  Report Type: Spontaneous
  Country: US (occurrence: US)
  Receive Date: 20160608
  Receipt Date: 20160712
  Transmission Date: 20161109
  Serious: No
  Sender: FDA-Public Use
  Company Number: US-PFIZER INC-2016286187

PATIENT
  Sex: Female

DRUGS (1)
  1. NARDIL [Suspect]
     Active Substance: PHENELZINE SULFATE
     Dosage: 15 MG, 2X/DAY (MORNING AND AFTERNOON)
     Dates: start: 1983

REACTIONS (1)
  - Gastrooesophageal reflux disease [Unknown]
